FAERS Safety Report 5896101-1 (Version None)
Quarter: 2008Q3

REPORT INFORMATION
  Report Type: 
  Country: None (occurrence: None)
  Receive Date: 20080924
  Receipt Date: 20080912
  Transmission Date: 20090109
  Serious: Yes (Other)
  Sender: FDA-Public Use
  Company Number: US-PFIZER INC-2006028170

PATIENT
  Sex: Female
  Weight: 81.6 kg

DRUGS (3)
  1. GEODON [Suspect]
     Indication: BIPOLAR DISORDER
  2. LEXAPRO [Concomitant]
  3. ADDERALL 10 [Concomitant]

REACTIONS (7)
  - ANGER [None]
  - DEPENDENCE [None]
  - FLAT AFFECT [None]
  - INSOMNIA [None]
  - PAIN IN EXTREMITY [None]
  - PSYCHIATRIC SYMPTOM [None]
  - SUICIDAL IDEATION [None]
